FAERS Safety Report 8896531 (Version 2)
Quarter: 2013Q1

REPORT INFORMATION
  Report Type: Spontaneous
  Country: US (occurrence: None)
  Receive Date: 20121102
  Receipt Date: 20121116
  Transmission Date: 20140127
  Serious: Yes (Hospitalization)
  Sender: FDA-Public Use
  Company Number: 2012-559

PATIENT
  Age: 54 Year
  Sex: Male

DRUGS (2)
  1. PRIALT [Suspect]
     Dosage: MCG, ONCE/HOUR, INTRATHECAL
     Route: 037
     Dates: start: 20111128
  2. BACLOFEN [Suspect]
     Dosage: MCG, ONCE/HOUR/INTRATHECAL
     Route: 037
     Dates: start: 20111128

REACTIONS (4)
  - Neuroleptic malignant syndrome [None]
  - Drug withdrawal syndrome [None]
  - Device related infection [None]
  - Sepsis [None]
